FAERS Safety Report 6376966-X (Version None)
Quarter: 2009Q3

REPORT INFORMATION
  Report Type: 
  Country: None (occurrence: None)
  Receive Date: 20090925
  Receipt Date: 20090414
  Transmission Date: 20100115
  Serious: No
  Sender: FDA-Public Use
  Company Number: US-BAYER-200913695NA

PATIENT
  Age: 26 Year
  Sex: Female
  Weight: 112 kg

DRUGS (7)
  1. MIRENA [Suspect]
     Indication: CONTRACEPTION
     Dosage: CONTINUOUS
     Route: 015
     Dates: start: 20090206, end: 20090218
  2. MIRENA [Suspect]
     Dosage: CONTINUOUS - REPLACEMENT MIRENA
     Route: 015
     Dates: start: 20090311
  3. CITALOPRAM HYDROBROMIDE [Concomitant]
  4. COGENTIN [Concomitant]
  5. LISINOPRIL [Concomitant]
  6. DILTIAZEM HCL [Concomitant]
  7. HALOPERIDOL [Concomitant]

REACTIONS (1)
  - IUCD COMPLICATION [None]
